FAERS Safety Report 9100742 (Version 1)
Quarter: 2013Q1

REPORT INFORMATION
  Report Type: Spontaneous
  Country: US (occurrence: US)
  Receive Date: 20130215
  Receipt Date: 20130215
  Transmission Date: 20140127
  Serious: No
  Sender: FDA-Public Use
  Company Number: US-PFIZER INC-2013058866

PATIENT
  Age: 50 Year
  Sex: Male

DRUGS (2)
  1. ATORVASTATIN CALCIUM [Suspect]
     Indication: BLOOD CHOLESTEROL INCREASED
     Dosage: 20 MG, UNK
     Route: 048
     Dates: start: 20130131
  2. TESTOSTERONE [Suspect]
     Dosage: 200 MG, EVERY OTHER WEEK
     Dates: start: 20130204

REACTIONS (2)
  - Rash generalised [Recovering/Resolving]
  - Hypersensitivity [Recovering/Resolving]
